FAERS Safety Report 16476136 (Version 1)
Quarter: 2019Q2

REPORT INFORMATION
  Report Type: Report from Study
  Country: US (occurrence: US)
  Receive Date: 20190625
  Receipt Date: 20190625
  Transmission Date: 20190711
  Serious: No
  Sender: FDA-Public Use
  Company Number: PHEH2019US026608

PATIENT
  Sex: Female

DRUGS (1)
  1. GILENYA [Suspect]
     Active Substance: FINGOLIMOD HYDROCHLORIDE
     Indication: MULTIPLE SCLEROSIS
     Dosage: .5 MG, QD
     Route: 048
     Dates: start: 2014

REACTIONS (3)
  - Motor dysfunction [Unknown]
  - Peroneal nerve palsy [Unknown]
  - Fatigue [Unknown]
